FAERS Safety Report 23702907 (Version 7)
Quarter: 2025Q1

REPORT INFORMATION
  Report Type: Spontaneous
  Country: US (occurrence: US)
  Receive Date: 20240403
  Receipt Date: 20250228
  Transmission Date: 20250409
  Serious: Yes (Hospitalization)
  Sender: KARYOPHARM THERAPEUTICS
  Company Number: US-KARYOPHARM-2024KPT000801

PATIENT

DRUGS (14)
  1. XPOVIO [Suspect]
     Active Substance: SELINEXOR
     Indication: Plasma cell myeloma
     Dosage: 80 MG, WEEKLY
     Route: 048
     Dates: start: 20240219
  2. XPOVIO [Suspect]
     Active Substance: SELINEXOR
     Dosage: 60 MG, WEEKLY
     Route: 048
     Dates: start: 202404, end: 2024
  3. XPOVIO [Suspect]
     Active Substance: SELINEXOR
     Dosage: 60 MG, WEEKLY
     Route: 048
  4. WARFARIN [Concomitant]
     Active Substance: WARFARIN
  5. PREDNISONE [Concomitant]
     Active Substance: PREDNISONE
  6. METHYLPREDNISOLONE [Concomitant]
     Active Substance: METHYLPREDNISOLONE
  7. ASPIRIN [Concomitant]
     Active Substance: ASPIRIN
  8. ACYCLOVIR [Concomitant]
     Active Substance: ACYCLOVIR
  9. ATORVASTATIN [Concomitant]
     Active Substance: ATORVASTATIN
  10. HYDROCHLOROTHIAZIDE [Concomitant]
     Active Substance: HYDROCHLOROTHIAZIDE
  11. LOSARTAN [Concomitant]
     Active Substance: LOSARTAN
  12. ZOFRAN [Concomitant]
     Active Substance: ONDANSETRON HYDROCHLORIDE
  13. TRAMADOL [Concomitant]
     Active Substance: TRAMADOL
  14. OLANZAPINE [Concomitant]
     Active Substance: OLANZAPINE

REACTIONS (7)
  - Dehydration [Recovering/Resolving]
  - Haemoglobin decreased [Recovering/Resolving]
  - Adverse event [Unknown]
  - Vomiting [Not Recovered/Not Resolved]
  - Nausea [Not Recovered/Not Resolved]
  - Diarrhoea [Unknown]
  - Fatigue [Unknown]

NARRATIVE: CASE EVENT DATE: 20240101
